FAERS Safety Report 8583006-0 (Version None)
Quarter: 2012Q3

REPORT INFORMATION
  Report Type: 
  Country: None (occurrence: None)
  Receive Date: 20120809
  Receipt Date: 20120725
  Transmission Date: 20120928
  Serious: Yes (Other)
  Sender: FDA-Public Use
  Company Number: US-BRISTOL-MYERS SQUIBB COMPANY-16803355

PATIENT
  Age: 60 Year
  Sex: Female

DRUGS (18)
  1. NORCO [Concomitant]
     Dosage: 1 DF = 5/325 UNITS NOS
     Route: 048
  2. ALBUTEROL [Concomitant]
     Dosage: NEBS PRN, 0.8390 UNITS NOS
  3. ZANTAC [Concomitant]
  4. BUMEX [Concomitant]
  5. ATIVAN [Concomitant]
     Dosage: PRN
  6. GLUCOPHAGE [Suspect]
     Dosage: 1 DF = CAPSULE
  7. ALDACTONE [Concomitant]
  8. ACTOS [Suspect]
  9. LEVOTHYROXINE SODIUM [Concomitant]
     Dosage: 1 DF = 0.088 UNITS NOS
  10. NIACIN [Concomitant]
  11. LIPITOR [Concomitant]
  12. FLUTICASONE PROPIONATE [Concomitant]
     Dosage: 1 DF = PUFF, 250/50 UNITS NOS
  13. POTASSIUM CHLORIDE [Concomitant]
  14. GLIPIZIDE [Concomitant]
  15. SPIRIVA [Concomitant]
  16. METOPROLOL TARTRATE [Concomitant]
  17. ASPIRIN [Concomitant]
  18. FISH OIL [Concomitant]

REACTIONS (1)
  - CARDIAC FAILURE CONGESTIVE [None]
